FAERS Safety Report 6453097-1 (Version None)
Quarter: 2009Q4

REPORT INFORMATION
  Report Type: 
  Country: None (occurrence: None)
  Receive Date: 20091123
  Receipt Date: 20091123
  Transmission Date: 20100525
  Serious: Yes (Other)
  Sender: FDA-Public Use
  Company Number: None

PATIENT
  Age: 80 Year
  Sex: Female

DRUGS (2)
  1. HUMALOG [Suspect]
     Indication: DIABETES MELLITUS
     Dosage: FOR USE IN INSULIN UNK
     Dates: start: 20091016, end: 20091121
  2. HUMALOG [Suspect]
     Indication: HYPERGLYCAEMIA
     Dosage: FOR USE IN INSULIN UNK
     Dates: start: 20091016, end: 20091121

REACTIONS (1)
  - DRUG INEFFECTIVE [None]
